FAERS Safety Report 19762776 (Version 1)
Quarter: 2021Q3

REPORT INFORMATION
  Report Type: Spontaneous
  Country: US (occurrence: US)
  Receive Date: 20210828
  Receipt Date: 20210828
  Transmission Date: 20211014
  Serious: No
  Sender: FDA-Public Use
  Company Number: US-MSNLABS-2021MSNSPO00331

PATIENT

DRUGS (1)
  1. PREGABALIN EXTENDED RELEASE TABLETS 165 [Suspect]
     Active Substance: PREGABALIN
     Indication: MYALGIA
     Route: 048

REACTIONS (1)
  - Drug ineffective [Unknown]
